FAERS Safety Report 5763177-1 (Version None)
Quarter: 2008Q2

REPORT INFORMATION
  Report Type: 
  Country: None (occurrence: None)
  Receive Date: 20080609
  Receipt Date: 20080528
  Transmission Date: 20081010
  Serious: Yes (Hospitalization)
  Sender: FDA-Public Use
  Company Number: FR-PFIZER INC-2008046210

PATIENT
  Sex: Female

DRUGS (9)
  1. DEPO-MEDROL [Suspect]
     Indication: ACUTE LYMPHOCYTIC LEUKAEMIA
     Route: 037
  2. CYTARABINE [Suspect]
     Indication: ACUTE LYMPHOCYTIC LEUKAEMIA
     Route: 037
  3. METHOTREXATE [Suspect]
     Indication: ACUTE LYMPHOCYTIC LEUKAEMIA
     Route: 037
  4. CYCLOPHOSPHAMIDE [Suspect]
     Indication: ACUTE LYMPHOCYTIC LEUKAEMIA
     Route: 042
  5. VINCRISTINE [Suspect]
     Indication: ACUTE LYMPHOCYTIC LEUKAEMIA
     Route: 042
  6. DAUNORUBICIN HCL [Suspect]
     Indication: ACUTE LYMPHOCYTIC LEUKAEMIA
     Route: 042
  7. ELSPAR [Concomitant]
     Indication: ACUTE LYMPHOCYTIC LEUKAEMIA
     Route: 037
  8. PREDNISONE TAB [Concomitant]
  9. LENOGRASTIM [Concomitant]

REACTIONS (1)
  - ENCEPHALOPATHY [None]
